FAERS Safety Report 4303470-2 (Version None)
Quarter: 2004Q1

REPORT INFORMATION
  Report Type: 
  Country: None (occurrence: None)
  Receive Date: 20040223
  Receipt Date: 20040209
  Transmission Date: 20041129
  Serious: Yes (Other)
  Sender: FDA-Public Use
  Company Number: US-JNJFOC-2003120384

PATIENT
  Age: 41 Year
  Sex: Male
  Weight: 91.173 kg

DRUGS (7)
  1. REMICADE [Suspect]
     Indication: RHEUMATOID ARTHRITIS
     Dosage: 300 MG, INTRAVENOUS
     Route: 042
     Dates: start: 20030529
  2. REMICADE [Suspect]
     Indication: RHEUMATOID ARTHRITIS
     Dosage: 300 MG, INTRAVENOUS
     Route: 042
     Dates: start: 20030612
  3. REMICADE [Suspect]
     Indication: RHEUMATOID ARTHRITIS
     Dosage: 300 MG, INTRAVENOUS
     Route: 042
     Dates: start: 20030710
  4. REMICADE [Suspect]
     Indication: RHEUMATOID ARTHRITIS
     Dosage: 300 MG, INTRAVENOUS
     Route: 042
     Dates: start: 20031009
  5. METHOTREXATE SODIUM [Concomitant]
  6. ISONIAZID [Concomitant]
  7. PREDNISONE [Concomitant]

REACTIONS (5)
  - BLINDNESS [None]
  - CEREBROSPINAL FLUID LEAKAGE [None]
  - MACULAR OEDEMA [None]
  - OPTIC NEURITIS [None]
  - STRESS SYMPTOMS [None]
